FAERS Safety Report 7988871-3 (Version None)
Quarter: 2011Q4

REPORT INFORMATION
  Report Type: 
  Country: None (occurrence: None)
  Receive Date: 20111215
  Receipt Date: 20111215
  Transmission Date: 20120403
  Serious: No
  Sender: FDA-Public Use
  Company Number: None

PATIENT
  Age: 61 Year
  Sex: Female
  Weight: 57.1532 kg

DRUGS (1)
  1. FACTIVE [Suspect]
     Indication: SINUSITIS
     Dosage: 325 MG ONCE DAILY
     Dates: start: 20111107, end: 20111117

REACTIONS (10)
  - NIGHT SWEATS [None]
  - PAIN [None]
  - URTICARIA [None]
  - GASTRIC DISORDER [None]
  - RASH [None]
  - PRURITUS [None]
  - NAUSEA [None]
  - INSOMNIA [None]
  - SINUSITIS [None]
  - FEELING JITTERY [None]
